FAERS Safety Report 25069958 (Version 2)
Quarter: 2025Q1

REPORT INFORMATION
  Report Type: Spontaneous
  Country: IT (occurrence: IT)
  Receive Date: 20250312
  Receipt Date: 20250325
  Transmission Date: 20250408
  Serious: Yes (Life-Threatening, Hospitalization, Other)
  Sender: MYLAN
  Company Number: None

PATIENT
  Age: 22 Year
  Sex: Female

DRUGS (4)
  1. NEURONTIN [Suspect]
     Active Substance: GABAPENTIN
     Indication: Product used for unknown indication
     Dates: start: 20250221, end: 20250221
  2. RISPERDAL [Suspect]
     Active Substance: RISPERIDONE
     Indication: Product used for unknown indication
     Dates: start: 20250221, end: 20250221
  3. VALPROATE SODIUM [Suspect]
     Active Substance: VALPROATE SODIUM
     Indication: Product used for unknown indication
     Dates: start: 20250221, end: 20250221
  4. NALTREXONE HYDROCHLORIDE [Suspect]
     Active Substance: NALTREXONE HYDROCHLORIDE
     Indication: Product used for unknown indication

REACTIONS (5)
  - Intentional self-injury [Recovered/Resolved]
  - Suicide attempt [Recovered/Resolved]
  - Drug abuse [Recovered/Resolved]
  - Hyporesponsive to stimuli [Unknown]
  - Sinus tachycardia [Unknown]

NARRATIVE: CASE EVENT DATE: 20250221
